FAERS Safety Report 15277385 (Version 1)
Quarter: 2018Q3

REPORT INFORMATION
  Report Type: Spontaneous
  Country: US (occurrence: US)
  Receive Date: 20180814
  Receipt Date: 20180814
  Transmission Date: 20181010
  Serious: Yes (Hospitalization, Other)
  Sender: FDA-Public Use
  Company Number: US-BAYER-2018-149817

PATIENT
  Age: 31 Year
  Sex: Female

DRUGS (1)
  1. MIRENA [Suspect]
     Active Substance: LEVONORGESTREL
     Indication: CONTRACEPTION
     Dosage: 20 MCG/24HR, CONT
     Route: 015
     Dates: start: 201806, end: 20180804

REACTIONS (7)
  - Abortion spontaneous [None]
  - Pregnancy with contraceptive device [None]
  - Uterine infection [None]
  - Foreign body in reproductive tract [None]
  - Vaginal haemorrhage [None]
  - Genital haemorrhage [None]
  - Drug ineffective [None]

NARRATIVE: CASE EVENT DATE: 2018
